FAERS Safety Report 19182043 (Version 2)
Quarter: 2021Q2

REPORT INFORMATION
  Report Type: Report from Study
  Country: CA (occurrence: CA)
  Receive Date: 20210426
  Receipt Date: 20210618
  Transmission Date: 20210717
  Serious: Yes (Hospitalization)
  Sender: FDA-Public Use
  Company Number: CA-JNJFOC-20210425711

PATIENT
  Age: 45 Year
  Sex: Female
  Weight: 79.4 kg

DRUGS (1)
  1. REMICADE [Suspect]
     Active Substance: INFLIXIMAB
     Indication: CROHN^S DISEASE
     Dosage: 10MG/KG
     Route: 042

REACTIONS (3)
  - Gastric infection [Unknown]
  - Pelvic abscess [Unknown]
  - Tuberculosis [Unknown]

NARRATIVE: CASE EVENT DATE: 202104
